FAERS Safety Report 5008800-4 (Version None)
Quarter: 2006Q2

REPORT INFORMATION
  Report Type: 
  Country: None (occurrence: None)
  Receive Date: 20060518
  Receipt Date: 20060507
  Transmission Date: 20061013
  Serious: Yes (Life-Threatening, Hospitalization, Disabling)
  Sender: FDA-Public Use
  Company Number: HQWYE206808MAY06

PATIENT
  Age: 22 Year
  Sex: Male

DRUGS (4)
  1. EFFEXOR XR [Suspect]
     Indication: DEPRESSION
     Dosage: HIGH DOSE FREQUENCY UNSPECIFIED, ORAL
     Route: 048
  2. ADDERALL 10 [Suspect]
     Indication: ATTENTION DEFICIT/HYPERACTIVITY DISORDER
     Dosage: DOSE AND FREQUENCY UNSPECIFIED, ORAL
     Route: 048
  3. ADDERALL 10 [Suspect]
     Indication: PSYCHOMOTOR HYPERACTIVITY
     Dosage: DOSE AND FREQUENCY UNSPECIFIED, ORAL
     Route: 048
  4. WELLBUTRIN [Suspect]
     Indication: DEPRESSION
     Dosage: HIGH DOSE FREQUENCY UNSPECIFIED, ORAL
     Route: 048

REACTIONS (3)
  - ANOXIC ENCEPHALOPATHY [None]
  - DRUG INTERACTION [None]
  - VENTRICULAR FIBRILLATION [None]
